FAERS Safety Report 4991954-3 (Version None)
Quarter: 2006Q2

REPORT INFORMATION
  Report Type: 
  Country: None (occurrence: None)
  Receive Date: 20060504
  Receipt Date: 20060427
  Transmission Date: 20061013
  Serious: Yes (Hospitalization)
  Sender: FDA-Public Use
  Company Number: US-JNJFOC-20060500509

PATIENT
  Sex: Female
  Weight: 77.11 kg

DRUGS (1)
  1. DURAGESIC-100 [Suspect]
     Route: 062

REACTIONS (2)
  - APPLICATION SITE VESICLES [None]
  - PYELONEPHRITIS ACUTE [None]
